FAERS Safety Report 15891785 (Version 1)
Quarter: 2019Q1

REPORT INFORMATION
  Report Type: Spontaneous
  Country: FR (occurrence: FR)
  Receive Date: 20190130
  Receipt Date: 20190130
  Transmission Date: 20190417
  Serious: Yes (Hospitalization, Other)
  Sender: FDA-Public Use
  Company Number: FR-PFIZER INC-2019035414

PATIENT
  Age: 65 Year
  Sex: Female
  Weight: 54 kg

DRUGS (1)
  1. VINCRISTINE SULFATE. [Suspect]
     Active Substance: VINCRISTINE SULFATE
     Indication: ACUTE LEUKAEMIA
     Dosage: 2 MG, UNK
     Route: 042
     Dates: start: 20161226, end: 20161226

REACTIONS (3)
  - Volvulus [Recovered/Resolved]
  - Constipation [Recovered/Resolved]
  - Megacolon [Recovered/Resolved]

NARRATIVE: CASE EVENT DATE: 201701
